FAERS Safety Report 9975285 (Version 1)
Quarter: 2014Q1

REPORT INFORMATION
  Report Type: Report from Study
  Country: US (occurrence: US)
  Receive Date: 20140306
  Receipt Date: 20140306
  Transmission Date: 20141002
  Serious: No
  Sender: FDA-Public Use
  Company Number: US-ABBVIE-13P-163-1155526-00

PATIENT
  Age: 26 Year
  Sex: Female

DRUGS (6)
  1. HUMIRA [Suspect]
     Indication: CROHN^S DISEASE
     Dosage: LOADING DOSE
     Dates: start: 20130923, end: 20130923
  2. LIALDA [Concomitant]
     Indication: CROHN^S DISEASE
     Dosage: 4 PILLS A DAY
  3. BUDESONIDE [Concomitant]
     Indication: CROHN^S DISEASE
     Dosage: 3 PILLS A DAY
  4. MERCAPTOPURINE [Concomitant]
     Indication: CROHN^S DISEASE
     Dosage: 1/2 PILLS A DAY
  5. CALCIUM [Concomitant]
     Indication: PRODUCT USED FOR UNKNOWN INDICATION
  6. MULTIVITAMIN [Concomitant]
     Indication: PRODUCT USED FOR UNKNOWN INDICATION
     Dosage: DAILY

REACTIONS (1)
  - Pharyngitis streptococcal [Recovering/Resolving]
